FAERS Safety Report 12522599 (Version 2)
Quarter: 2016Q3

REPORT INFORMATION
  Report Type: Spontaneous
  Country: NO (occurrence: NO)
  Receive Date: 20160701
  Receipt Date: 20160718
  Transmission Date: 20161109
  Serious: Yes (Other)
  Sender: FDA-Public Use
  Company Number: NO-WATSON-2016-14059

PATIENT
  Age: 28 Year
  Sex: Female
  Weight: 63 kg

DRUGS (2)
  1. PREDNISOLONE. [Suspect]
     Active Substance: PREDNISOLONE
     Indication: DRUG HYPERSENSITIVITY
     Dosage: 5 MG, TOTAL
     Route: 065
     Dates: start: 20160414, end: 20160414
  2. PROCORALAN [Concomitant]
     Active Substance: IVABRADINE
     Indication: SINUS TACHYCARDIA
     Dosage: UNK
     Route: 065
     Dates: start: 20160503

REACTIONS (5)
  - Ventricular arrhythmia [Unknown]
  - Extrasystoles [Recovered/Resolved]
  - Arrhythmia supraventricular [Unknown]
  - Arrhythmia [Recovered/Resolved]
  - Dizziness [Unknown]

NARRATIVE: CASE EVENT DATE: 20160414
